FAERS Safety Report 17411526 (Version 5)
Quarter: 2020Q2

REPORT INFORMATION
  Report Type: Report from Study
  Country: US (occurrence: US)
  Receive Date: 20200213
  Receipt Date: 20200526
  Transmission Date: 20200713
  Serious: Yes (Death, Life-Threatening, Hospitalization)
  Sender: FDA-Public Use
  Company Number: US-ROCHE-2534724

PATIENT
  Age: 83 Year
  Sex: Male
  Weight: 79.2 kg

DRUGS (5)
  1. OBINUTUZUMAB. [Suspect]
     Active Substance: OBINUTUZUMAB
     Indication: CHRONIC LYMPHOCYTIC LEUKAEMIA
     Dosage: ON 04/DEC/2019, HE RECEIVED RECENT DOSE OF OBINUTUZUMAB.
     Route: 042
     Dates: start: 20190412
  2. OBINUTUZUMAB. [Suspect]
     Active Substance: OBINUTUZUMAB
     Dosage: C1D2
     Route: 042
     Dates: start: 20191106
  3. IBRUTINIB [Suspect]
     Active Substance: IBRUTINIB
     Indication: CHRONIC LYMPHOCYTIC LEUKAEMIA
     Dosage: ON 27/NOV/2019, HE RECEIVED RECENT DOSE OF IBRUTINIB
     Route: 048
     Dates: start: 20190412
  4. IBRUTINIB [Suspect]
     Active Substance: IBRUTINIB
     Dosage: ON 27/NOV/2019, HE RECEIVED RECENT DOSE OF IBRUTINIB
     Route: 048
     Dates: start: 20191115
  5. OBINUTUZUMAB. [Suspect]
     Active Substance: OBINUTUZUMAB
     Dosage: C1D8 + C1D15, C2-6D1
     Route: 042

REACTIONS (8)
  - Sepsis [Unknown]
  - Fatigue [Recovered/Resolved]
  - Pulmonary oedema [Unknown]
  - Pneumonia [Fatal]
  - Myocardial infarction [Unknown]
  - Acute kidney injury [Unknown]
  - Respiratory failure [Unknown]
  - Dyspnoea [Recovered/Resolved]

NARRATIVE: CASE EVENT DATE: 20191114
